FAERS Safety Report 7346603-6 (Version None)
Quarter: 2011Q1

REPORT INFORMATION
  Report Type: 
  Country: None (occurrence: None)
  Receive Date: 20110311
  Receipt Date: 20110301
  Transmission Date: 20110831
  Serious: Yes (Death, Hospitalization)
  Sender: FDA-Public Use
  Company Number: US-NOVOPROD-324369

PATIENT
  Sex: Male
  Weight: 61.678 kg

DRUGS (3)
  1. FEIBA [Concomitant]
     Indication: FACTOR VIII INHIBITION
     Dosage: UNKNOWN
     Dates: end: 20101116
  2. NOVOSEVEN [Suspect]
     Indication: FACTOR VIII INHIBITION
     Dosage: UNKNOWN
     Dates: start: 20100301
  3. NOVOSEVEN [Suspect]
     Dosage: 6000 MCG, EVERY 2 HOURS
     Dates: start: 20101101

REACTIONS (3)
  - LOCALISED INFECTION [None]
  - SPINAL HAEMATOMA [None]
  - SEPSIS [None]
